FAERS Safety Report 18501616 (Version 1)
Quarter: 2020Q4

REPORT INFORMATION
  Report Type: Spontaneous
  Country: US (occurrence: US)
  Receive Date: 20201113
  Receipt Date: 20201113
  Transmission Date: 20210114
  Serious: Yes (Death)
  Sender: FDA-Public Use
  Company Number: None

PATIENT
  Age: 64 Year
  Sex: Male
  Weight: 88 kg

DRUGS (3)
  1. DEXAMETHASONE. [Concomitant]
     Active Substance: DEXAMETHASONE
     Dates: start: 20201110, end: 20201112
  2. REMDESIVIR. [Concomitant]
     Active Substance: REMDESIVIR
     Dates: start: 20201110, end: 20201112
  3. RAVULIZUMAB. [Suspect]
     Active Substance: RAVULIZUMAB
     Indication: COVID-19 PNEUMONIA
     Dosage: ?          OTHER FREQUENCY:ONCE;?
     Route: 041
     Dates: start: 20201111, end: 20201111

REACTIONS (1)
  - Death [None]

NARRATIVE: CASE EVENT DATE: 20201111
